FAERS Safety Report 23466189 (Version 1)
Quarter: 2024Q1

REPORT INFORMATION
  Report Type: Spontaneous
  Country: JP (occurrence: JP)
  Receive Date: 20240201
  Receipt Date: 20240201
  Transmission Date: 20240410
  Serious: Yes (Hospitalization)
  Sender: FDA-Public Use
  Company Number: JP-ELI_LILLY_AND_COMPANY-JP202401010893

PATIENT
  Age: 75 Year
  Sex: Female
  Weight: 49 kg

DRUGS (7)
  1. OLANZAPINE [Suspect]
     Active Substance: OLANZAPINE
     Indication: Psychotic disorder
     Dosage: 5 MG, DAILY?DAILY DOSE: 5 MILLIGRAM
     Route: 048
     Dates: start: 20230731, end: 20230801
  2. OLANZAPINE [Suspect]
     Active Substance: OLANZAPINE
     Indication: Psychotic disorder
     Dosage: 10 MG, DAILY?DAILY DOSE: 10 MILLIGRAM
     Route: 048
     Dates: start: 20230802, end: 20230803
  3. REFLEX [Suspect]
     Active Substance: MIRTAZAPINE
     Route: 048
     Dates: end: 20230803
  4. MAGNESIUM OXIDE [Concomitant]
     Active Substance: MAGNESIUM OXIDE
     Route: 048
  5. LIVALO [Concomitant]
     Active Substance: PITAVASTATIN CALCIUM
     Route: 048
  6. ENSURE ACTI M2 [Concomitant]
     Route: 048
  7. FLUNITRAZEPAM [Concomitant]
     Active Substance: FLUNITRAZEPAM
     Route: 048
     Dates: end: 20230803

REACTIONS (5)
  - Tremor [Recovered/Resolved]
  - Muscle rigidity [Recovered/Resolved]
  - Blood creatine phosphokinase increased [Recovering/Resolving]
  - Urinary retention [Recovering/Resolving]
  - Abnormal behaviour [Unknown]

NARRATIVE: CASE EVENT DATE: 20230804
